FAERS Safety Report 6417445-0 (Version None)
Quarter: 2009Q4

REPORT INFORMATION
  Report Type: 
  Country: None (occurrence: None)
  Receive Date: 20091026
  Receipt Date: 20091014
  Transmission Date: 20100525
  Serious: Yes (Hospitalization)
  Sender: FDA-Public Use
  Company Number: GRP09000080

PATIENT
  Age: 71 Year
  Sex: Female
  Weight: 60 kg

DRUGS (1)
  1. ACTONEL WITH CALCIUM (COPACKAGED) [Suspect]
     Indication: OSTEOPOROTIC FRACTURE
     Dosage: 35 MG, CYCLIC 1/D, ORAL
     Route: 048
     Dates: start: 20090902

REACTIONS (2)
  - NECROTISING FASCIITIS [None]
  - OEDEMA PERIPHERAL [None]
